FAERS Safety Report 20264258 (Version 1)
Quarter: 2021Q4

REPORT INFORMATION
  Report Type: Spontaneous
  Country: DE (occurrence: DE)
  Receive Date: 20211231
  Receipt Date: 20211231
  Transmission Date: 20220304
  Serious: Yes (Hospitalization)
  Sender: FDA-Public Use
  Company Number: DE-ADRED-07346-01

PATIENT
  Age: 90 Year
  Sex: Male
  Weight: 70 kg

DRUGS (7)
  1. OLMESARTAN [Suspect]
     Active Substance: OLMESARTAN
     Dosage: 20 MILLIGRAM DAILY; ,0-0-1-0
     Route: 048
  2. TORSEMIDE [Suspect]
     Active Substance: TORSEMIDE
     Dosage: 10 MILLIGRAM DAILY;
     Route: 048
  3. CIPROFLOXACIN [Suspect]
     Active Substance: CIPROFLOXACIN
     Dosage: 500 MILLIGRAM DAILY;
     Route: 048
  4. TIMOLOL [Concomitant]
     Active Substance: TIMOLOL
     Dosage: 2 DOSAGE FORMS DAILY; 1 DROP, 1-0-1-0, DROP
     Route: 047
  5. SODIUM BICARBONATE [Concomitant]
     Active Substance: SODIUM BICARBONATE
     Dosage: 3 GRAM DAILY;  1-1-1-0
     Route: 048
  6. DALTEPARIN [Concomitant]
     Active Substance: DALTEPARIN
     Dosage: 1 DOSAGE FORMS DAILY; 5000 IU, 0-0-1-0, PRE-FILLED SYRINGES
     Route: 058
  7. CHOLECALCIFEROL [Concomitant]
     Active Substance: CHOLECALCIFEROL
     Dosage: 20,000 IU, ACCORDING TO THE SCHEME,,COLECALCIFEROL (VITAMIN D)
     Route: 048

REACTIONS (4)
  - Dyspnoea [Unknown]
  - Confusional state [Unknown]
  - Pleural effusion [Unknown]
  - Condition aggravated [Unknown]
